FAERS Safety Report 4849436-5 (Version None)
Quarter: 2005Q4

REPORT INFORMATION
  Report Type: 
  Country: None (occurrence: None)
  Receive Date: 20051207
  Receipt Date: 20051128
  Transmission Date: 20060501
  Serious: Yes (Other)
  Sender: FDA-Public Use
  Company Number: 2005BI020187

PATIENT
  Sex: Female

DRUGS (3)
  1. AVONEX [Suspect]
     Indication: MULTIPLE SCLEROSIS
     Dosage: IM
     Route: 030
     Dates: end: 20050101
  2. AVONEX [Suspect]
     Indication: MULTIPLE SCLEROSIS
     Dosage: QW;IM
     Route: 030
     Dates: start: 20050601
  3. MEDICATIONS (NOS) [Concomitant]

REACTIONS (4)
  - CARDIOMEGALY [None]
  - CONDITION AGGRAVATED [None]
  - HEART VALVE INSUFFICIENCY [None]
  - MULTIPLE SCLEROSIS [None]
